FAERS Safety Report 4829564-0 (Version None)
Quarter: 2005Q4

REPORT INFORMATION
  Report Type: 
  Country: None (occurrence: None)
  Receive Date: 20051116
  Receipt Date: 20051108
  Transmission Date: 20060501
  Serious: Yes (Other)
  Sender: FDA-Public Use
  Company Number: US-BRISTOL-MYERS SQUIBB COMPANY-13174289

PATIENT
  Sex: Female

DRUGS (3)
  1. ESTRADIOL INJ [Suspect]
     Indication: HORMONE REPLACEMENT THERAPY
     Dates: start: 20010301
  2. CLIMARA [Suspect]
     Indication: HORMONE REPLACEMENT THERAPY
     Route: 062
     Dates: start: 20000101, end: 20010301
  3. CLIMARA [Suspect]
     Route: 062
     Dates: start: 20000101, end: 20010301

REACTIONS (1)
  - ISCHAEMIC STROKE [None]
